FAERS Safety Report 23503618 (Version 2)
Quarter: 2024Q1

REPORT INFORMATION
  Report Type: Spontaneous
  Country: US (occurrence: US)
  Receive Date: 20240208
  Receipt Date: 20240305
  Transmission Date: 20240410
  Serious: Yes (Hospitalization)
  Sender: FDA-Public Use
  Company Number: US-TEVA-VS-3153941

PATIENT
  Age: 58 Year
  Sex: Female

DRUGS (2)
  1. LIOTHYRONINE [Suspect]
     Active Substance: LIOTHYRONINE
     Indication: Temperature regulation disorder
     Dosage: 5-40 MICROGRAM
     Route: 048
  2. LIOTHYRONINE [Suspect]
     Active Substance: LIOTHYRONINE
     Indication: Temperature regulation disorder
     Dosage: 5-40 MICROGRAM
     Route: 048

REACTIONS (2)
  - Stress cardiomyopathy [Recovering/Resolving]
  - Hyperthyroidism [Recovering/Resolving]
